FAERS Safety Report 8803725 (Version 2)
Quarter: 2014Q1

REPORT INFORMATION
  Report Type: Spontaneous
  Country: US (occurrence: US)
  Receive Date: 20120924
  Receipt Date: 20140206
  Transmission Date: 20141002
  Serious: Yes (Hospitalization, Other)
  Sender: FDA-Public Use
  Company Number: US-B.I. PHARMACEUTICALS,INC./RIDGEFIELD-2012-BP-22769BP

PATIENT
  Age: 83 Year
  Sex: Male
  Weight: 95.25 kg

DRUGS (19)
  1. PRADAXA [Suspect]
     Indication: ANTICOAGULANT THERAPY
     Dates: start: 20110502, end: 20110601
  2. PRADAXA [Suspect]
     Indication: ATRIAL FIBRILLATION
  3. TRUSOPT EYE DROPS [Concomitant]
     Dates: start: 2010
  4. NEXIUM [Concomitant]
     Dosage: 160 MG
     Dates: start: 2010
  5. FLECAINIDE [Concomitant]
     Dosage: 200 MG
     Dates: start: 2011
  6. HUMALOG [Concomitant]
     Dates: start: 2010
  7. LIDODERM [Concomitant]
     Route: 061
     Dates: start: 2010
  8. ZOFRAN [Concomitant]
     Route: 042
     Dates: start: 2010
  9. PREDNISONE [Concomitant]
     Dosage: 1 MG
     Route: 042
     Dates: start: 2011
  10. OCUVITE [Concomitant]
     Dates: start: 2010
  11. LANTUS [Concomitant]
     Dates: start: 2010
  12. GLUCOSAMINE [Concomitant]
     Dates: start: 2010
  13. VITAMIN D [Concomitant]
  14. VITAMIN B12 [Concomitant]
  15. VITAMIN C [Concomitant]
  16. CITRATE WITH IRON [Concomitant]
  17. TYLENOL [Concomitant]
  18. SIMVASTASTIN [Concomitant]
     Dosage: 20 MG
     Dates: start: 2011
  19. FLOMAX [Concomitant]
     Dosage: 0.4 MG
     Dates: start: 2010

REACTIONS (5)
  - Gastrointestinal haemorrhage [Recovered/Resolved]
  - Anaemia [Unknown]
  - Blood urea increased [Unknown]
  - Leukocytosis [Unknown]
  - Vessel puncture site haemorrhage [Unknown]
